FAERS Safety Report 25124921 (Version 1)
Quarter: 2025Q1

REPORT INFORMATION
  Report Type: Spontaneous
  Country: US (occurrence: US)
  Receive Date: 20250326
  Receipt Date: 20250326
  Transmission Date: 20250409
  Serious: No
  Sender: CALLIDITAS THERAPEUTICS AB
  Company Number: US-Calliditas-2025CAL00730

PATIENT
  Age: 32 Year
  Sex: Female

DRUGS (4)
  1. TARPEYO [Suspect]
     Active Substance: BUDESONIDE
     Indication: IgA nephropathy
     Route: 048
     Dates: start: 20250117
  2. FARXIGA [Concomitant]
     Active Substance: DAPAGLIFLOZIN PROPANEDIOL
  3. LISINOPRIL [Concomitant]
     Active Substance: LISINOPRIL
  4. LOSARTAN [Concomitant]
     Active Substance: LOSARTAN

REACTIONS (1)
  - Nasopharyngitis [Not Recovered/Not Resolved]
